FAERS Safety Report 16740857 (Version 20)
Quarter: 2020Q4

REPORT INFORMATION
  Report Type: Spontaneous
  Country: US (occurrence: US)
  Receive Date: 20190826
  Receipt Date: 20201118
  Transmission Date: 20210113
  Serious: No
  Sender: FDA-Public Use
  Company Number: US-PFIZER INC-2019363980

PATIENT
  Age: 65 Year
  Sex: Female

DRUGS (7)
  1. ACCUPRIL [Suspect]
     Active Substance: QUINAPRIL HYDROCHLORIDE
     Dosage: 10 MG
  2. DIFLUCAN [Suspect]
     Active Substance: FLUCONAZOLE
     Dosage: 100 MG, UNK
  3. PREMARIN [Suspect]
     Active Substance: ESTROGENS, CONJUGATED
     Dosage: 2 G, THREE TIMES A WEEK (3 X A WEEK)
  4. PREMARIN [Suspect]
     Active Substance: ESTROGENS, CONJUGATED
     Dosage: 0.625 MG/G, DAILY [INSERT 0.5 APPLICATOR(S) FUL EVERY DAY BY VAGINAL ROUTE]
     Route: 067
  5. ACCUPRIL [Suspect]
     Active Substance: QUINAPRIL HYDROCHLORIDE
     Dosage: 20 MG
  6. ALDACTONE [Suspect]
     Active Substance: SPIRONOLACTONE
     Dosage: UNK
  7. DIFLUCAN [Suspect]
     Active Substance: FLUCONAZOLE
     Dosage: 50 MG, UNK

REACTIONS (17)
  - Viral infection [Unknown]
  - Fatigue [Unknown]
  - Headache [Unknown]
  - Blood cholesterol increased [Unknown]
  - Skin discolouration [Unknown]
  - Joint injury [Unknown]
  - Influenza [Unknown]
  - Off label use [Unknown]
  - Oropharyngeal pain [Unknown]
  - Insomnia [Unknown]
  - Snoring [Unknown]
  - Malaise [Unknown]
  - Fall [Unknown]
  - Urinary tract infection [Unknown]
  - Abdominal pain upper [Unknown]
  - Movement disorder [Unknown]
  - Blood pressure fluctuation [Unknown]
